FAERS Safety Report 5373049-2 (Version None)
Quarter: 2007Q2

REPORT INFORMATION
  Report Type: 
  Country: None (occurrence: None)
  Receive Date: 20070626
  Receipt Date: 20051118
  Transmission Date: 20071010
  Serious: Yes (Other)
  Sender: FDA-Public Use
  Company Number: 2005US-01056

PATIENT
  Sex: Female

DRUGS (2)
  1. ISOTRETINOIN [Suspect]
     Indication: ACNE
     Dosage: 30 MG, BID, ORAL
     Route: 048
     Dates: start: 20050719, end: 20051101
  2. ORAL CONTRACEPTIVE [Concomitant]

REACTIONS (5)
  - DEVICE FAILURE [None]
  - DRUG EXPOSURE DURING PREGNANCY [None]
  - MALAISE [None]
  - MEDICATION ERROR [None]
  - PREGNANCY WITH CONTRACEPTIVE DEVICE [None]
